FAERS Safety Report 26130007 (Version 2)
Quarter: 2025Q4

REPORT INFORMATION
  Report Type: Report from Study
  Country: BR (occurrence: BR)
  Receive Date: 20251208
  Receipt Date: 20251215
  Transmission Date: 20260117
  Serious: Yes (Other)
  Sender: ROCHE
  Company Number: BR-ROCHE-10000453550

PATIENT
  Sex: Male

DRUGS (1)
  1. RITUXIMAB [Suspect]
     Active Substance: RITUXIMAB
     Indication: Product used for unknown indication

REACTIONS (2)
  - Venous thrombosis [Unknown]
  - Paroxysmal nocturnal haemoglobinuria [Unknown]
